FAERS Safety Report 21456828 (Version 1)
Quarter: 2022Q4

REPORT INFORMATION
  Report Type: Spontaneous
  Country: ES (occurrence: ES)
  Receive Date: 20221014
  Receipt Date: 20221014
  Transmission Date: 20230113
  Serious: Yes (Death, Hospitalization, Other)
  Sender: FDA-Public Use
  Company Number: ES-AMGEN-ESPSP2022175193

PATIENT

DRUGS (9)
  1. PANITUMUMAB [Suspect]
     Active Substance: PANITUMUMAB
     Indication: Colorectal cancer metastatic
     Dosage: UNK
     Route: 065
  2. LEUCOVORIN [Concomitant]
     Active Substance: LEUCOVORIN
     Indication: Colorectal cancer metastatic
     Route: 065
  3. FLUOROURACIL [Concomitant]
     Active Substance: FLUOROURACIL
     Indication: Colorectal cancer metastatic
     Route: 065
  4. OXALIPLATIN [Concomitant]
     Active Substance: OXALIPLATIN
     Indication: Colorectal cancer metastatic
     Route: 065
  5. IRINOTECAN [Concomitant]
     Active Substance: IRINOTECAN
     Indication: Colorectal cancer metastatic
     Route: 065
  6. CAPECITABINE [Concomitant]
     Active Substance: CAPECITABINE
     Indication: Colorectal cancer metastatic
     Route: 065
  7. LEUCOVORIN [Concomitant]
     Active Substance: LEUCOVORIN
     Indication: Colorectal cancer metastatic
     Route: 065
  8. URACIL [Concomitant]
     Active Substance: URACIL
     Indication: Colorectal cancer metastatic
     Route: 065
  9. TEGAFUR [Concomitant]
     Active Substance: TEGAFUR
     Indication: Colorectal cancer metastatic
     Route: 065

REACTIONS (9)
  - Death [Fatal]
  - Colorectal cancer metastatic [Unknown]
  - Procedural haemorrhage [Unknown]
  - Post procedural complication [Unknown]
  - Post procedural bile leak [Unknown]
  - Post procedural haemorrhage [Unknown]
  - Hepatic failure [Unknown]
  - Abdominal infection [Unknown]
  - Hospitalisation [Unknown]
